FAERS Safety Report 22251269 (Version 1)
Quarter: 2023Q2

REPORT INFORMATION
  Report Type: Spontaneous
  Country: US (occurrence: US)
  Receive Date: 20230425
  Receipt Date: 20230425
  Transmission Date: 20230722
  Serious: Yes (Other)
  Sender: FDA-Public Use
  Company Number: US-BAXTER-2023BAX019219

PATIENT
  Age: 57 Year
  Sex: Male

DRUGS (2)
  1. CEFAZOLIN [Suspect]
     Active Substance: CEFAZOLIN
     Indication: Osteomyelitis
     Dosage: MONOTHERAPY AT A DOSE OF 2 G EVERY 8 HOURS
     Route: 065
  2. HEPARIN [Concomitant]
     Active Substance: HEPARIN SODIUM
     Indication: Flushing
     Dosage: 2000 U FLUSHES
     Route: 065

REACTIONS (2)
  - Hypoprothrombinaemia [Unknown]
  - Coagulopathy [Unknown]
